FAERS Safety Report 9023001 (Version 1)
Quarter: 2013Q1

REPORT INFORMATION
  Report Type: Spontaneous
  Country: US (occurrence: US)
  Receive Date: 20130120
  Receipt Date: 20130120
  Transmission Date: 20140127
  Serious: No
  Sender: FDA-Public Use
  Company Number: US-ALLERGAN-1215712US

PATIENT
  Age: 42 Year
  Sex: Female

DRUGS (2)
  1. BOTOX? [Suspect]
     Indication: HYPERTONIC BLADDER
     Dosage: UNK, SINGLE
     Dates: start: 20120627, end: 20120627
  2. TOVIAZ [Concomitant]
     Indication: HYPERTONIC BLADDER
     Route: 030

REACTIONS (2)
  - Muscle twitching [Not Recovered/Not Resolved]
  - Muscle disorder [Not Recovered/Not Resolved]
